FAERS Safety Report 4282421-3 (Version None)
Quarter: 2004Q1

REPORT INFORMATION
  Report Type: 
  Country: None (occurrence: None)
  Receive Date: 20040129
  Receipt Date: 20040120
  Transmission Date: 20041129
  Serious: Yes (Hospitalization)
  Sender: FDA-Public Use
  Company Number: HQWYE438804DEC03

PATIENT
  Age: 66 Year
  Sex: Male

DRUGS (11)
  1. AMIODARONE HCL [Suspect]
     Indication: VENTRICULAR TACHYCARDIA
     Dosage: 200 MG 1X PER 1 DAY, ORA
     Route: 048
     Dates: start: 20010101, end: 20031013
  2. LASIX [Concomitant]
  3. SLOW-K [Concomitant]
  4. LANIRAPID (METILDOGOXIN) [Concomitant]
  5. MEILAX (ETHYL LOFLAZEPATE) [Concomitant]
  6. LIPITOR [Concomitant]
  7. ALLOPURINOL [Concomitant]
  8. DIOVAN [Concomitant]
  9. MEXITIL [Concomitant]
  10. BAYASPIRINA (ACETYLSALICYLIC ACID) [Concomitant]
  11. ISOSORBIDE DINITRATE [Concomitant]

REACTIONS (1)
  - INTERSTITIAL LUNG DISEASE [None]
